FAERS Safety Report 20494088 (Version 1)
Quarter: 2022Q1

REPORT INFORMATION
  Report Type: Report from Study
  Country: CA (occurrence: CA)
  Receive Date: 20220221
  Receipt Date: 20220221
  Transmission Date: 20220423
  Serious: Yes (Hospitalization)
  Sender: FDA-Public Use
  Company Number: CA-NOVARTISPH-NVSC2020CA329922

PATIENT
  Age: 47 Year
  Sex: Female

DRUGS (11)
  1. ILARIS [Suspect]
     Active Substance: CANAKINUMAB
     Indication: Tumour necrosis factor receptor-associated periodic syndrome
     Dosage: 150 MG, (EVERY 4 WEEKS)
     Route: 058
     Dates: start: 20200925
  2. ILARIS [Suspect]
     Active Substance: CANAKINUMAB
     Dosage: 300 MG, (EVERY 4 WEEKS)
     Route: 058
     Dates: start: 20200925
  3. ILARIS [Suspect]
     Active Substance: CANAKINUMAB
     Dosage: UNK
     Route: 065
     Dates: start: 20201030
  4. ILARIS [Suspect]
     Active Substance: CANAKINUMAB
     Dosage: 300 MG, (EVERY 4 WEEKS)
     Route: 058
     Dates: start: 20210107
  5. ILARIS [Suspect]
     Active Substance: CANAKINUMAB
     Dosage: UNK
     Route: 065
     Dates: start: 20210306
  6. ILARIS [Suspect]
     Active Substance: CANAKINUMAB
     Dosage: 150 MG, BIW
     Route: 058
     Dates: start: 20220130
  7. PREDNISONE [Suspect]
     Active Substance: PREDNISONE
     Indication: Product used for unknown indication
     Dosage: 20 MG, QD
     Route: 048
     Dates: start: 20210306, end: 20210313
  8. PREDNISONE [Suspect]
     Active Substance: PREDNISONE
     Dosage: 5 MG, 4 TIMES A DAY
     Route: 065
     Dates: start: 20210305
  9. SUMATRIPTAN [Suspect]
     Active Substance: SUMATRIPTAN
     Indication: Headache
     Dosage: 12 DOSAGE FORM, PRN
     Route: 048
     Dates: start: 20210610
  10. LORAZEPAM [Concomitant]
     Active Substance: LORAZEPAM
     Indication: Product used for unknown indication
     Dosage: UNK
     Route: 065
  11. COLCHICINE [Concomitant]
     Active Substance: COLCHICINE
     Indication: Product used for unknown indication
     Dosage: UNK UNK, QD
     Route: 048
     Dates: start: 20210306

REACTIONS (26)
  - Pulmonary embolism [Unknown]
  - Tumour necrosis factor receptor-associated periodic syndrome [Unknown]
  - Condition aggravated [Not Recovered/Not Resolved]
  - Myalgia [Recovering/Resolving]
  - Pyrexia [Unknown]
  - Arthralgia [Recovering/Resolving]
  - Abdominal discomfort [Recovering/Resolving]
  - Amnesia [Not Recovered/Not Resolved]
  - Influenza [Unknown]
  - Pain [Unknown]
  - Dizziness [Unknown]
  - Illness [Unknown]
  - Malaise [Not Recovered/Not Resolved]
  - Anxiety [Unknown]
  - Chills [Unknown]
  - Depression [Unknown]
  - Hyperhidrosis [Unknown]
  - Fatigue [Recovering/Resolving]
  - Nausea [Not Recovered/Not Resolved]
  - Headache [Recovering/Resolving]
  - Migraine [Unknown]
  - Adenoidal hypertrophy [Unknown]
  - Asthenia [Unknown]
  - Product dose omission issue [Unknown]
  - Drug ineffective [Unknown]
  - Inappropriate schedule of product administration [Unknown]

NARRATIVE: CASE EVENT DATE: 20210107
